FAERS Safety Report 7638277-1 (Version None)
Quarter: 2011Q3

REPORT INFORMATION
  Report Type: 
  Country: None (occurrence: None)
  Receive Date: 20110727
  Receipt Date: 20110719
  Transmission Date: 20111222
  Serious: Yes (Other)
  Sender: FDA-Public Use
  Company Number: US-BRISTOL-MYERS SQUIBB COMPANY-15868532

PATIENT
  Age: 62 Year
  Sex: Female

DRUGS (6)
  1. ZOMETA [Concomitant]
     Dosage: ALSO RECEIVED ON 08JUL2011.
     Route: 042
     Dates: start: 20110608
  2. KYTRIL [Concomitant]
     Indication: PREMEDICATION
     Route: 042
  3. BENADRYL [Concomitant]
     Indication: PREMEDICATION
  4. DECADRON [Concomitant]
     Indication: PREMEDICATION
  5. XELODA [Suspect]
     Indication: BREAST CANCER METASTATIC
     Dosage: 2 TABS X 14DAYS 1ST CYCLE, 10MAY-24MAY2011, NOT TAKEN FOR 2ND CYCLE (08-JUN-2011).
     Route: 048
     Dates: start: 20110510
  6. IXEMPRA KIT [Suspect]
     Indication: BREAST CANCER METASTATIC
     Dosage: 60MG,REDUCED BY 20% TO 48MG, 2ND CYCLE ON 08JUN2011.
     Route: 042
     Dates: start: 20110510

REACTIONS (3)
  - LIVER FUNCTION TEST ABNORMAL [None]
  - PAIN [None]
  - ASCITES [None]
